FAERS Safety Report 5948078-8 (Version None)
Quarter: 2008Q4

REPORT INFORMATION
  Report Type: 
  Country: None (occurrence: None)
  Receive Date: 20081107
  Receipt Date: 20081022
  Transmission Date: 20090506
  Serious: Yes (Other)
  Sender: FDA-Public Use
  Company Number: 8023640

PATIENT
  Age: 11 Year
  Sex: Male

DRUGS (1)
  1. EQUASYM [Suspect]
     Dosage: 30 MG /D

REACTIONS (1)
  - TIC [None]
